FAERS Safety Report 19919351 (Version 1)
Quarter: 2021Q4

REPORT INFORMATION
  Report Type: Spontaneous
  Country: CN (occurrence: CN)
  Receive Date: 20211004
  Receipt Date: 20211004
  Transmission Date: 20220304
  Serious: Yes (Hospitalization)
  Sender: FDA-Public Use
  Company Number: CN-BAXTER-2021BAX030986

PATIENT
  Age: 43 Year
  Sex: Male
  Weight: 55.3 kg

DRUGS (9)
  1. CYCLOPHOSPHAMIDE [Suspect]
     Active Substance: CYCLOPHOSPHAMIDE
     Indication: Neoplasm of thymus
     Dosage: CYCLOPHOSPHAMIDE 830 MG + 0.9% SODIUM CHLORIDE100 ML
     Route: 041
     Dates: start: 20210828, end: 20210828
  2. CYCLOPHOSPHAMIDE [Suspect]
     Active Substance: CYCLOPHOSPHAMIDE
     Dosage: DOSE RE-INTRODUCED.
     Route: 041
  3. SODIUM CHLORIDE [Suspect]
     Active Substance: SODIUM CHLORIDE
     Indication: Medication dilution
     Dosage: CISPLATIN 80 MG + 0.9% SODIUM CHLORIDE 500 ML
     Route: 041
     Dates: start: 20210828, end: 20210828
  4. SODIUM CHLORIDE [Suspect]
     Active Substance: SODIUM CHLORIDE
     Dosage: CYCLOPHOSPHAMIDE 830 MG + 0.9% SODIUM CHLORIDE 100 ML
     Route: 041
     Dates: start: 20210828, end: 20210828
  5. DEXTROSE [Suspect]
     Active Substance: DEXTROSE
     Indication: Medication dilution
     Dosage: PIRARUBICIN HYDROCHLORIDE 80 MG + GLUCOSE INJECTION 500 ML
     Route: 041
     Dates: start: 20210828, end: 20210828
  6. PIRARUBICIN HYDROCHLORIDE [Suspect]
     Active Substance: PIRARUBICIN HYDROCHLORIDE
     Indication: Neoplasm of thymus
     Dosage: PIRARUBICIN HYDROCHLORIDE 80 MG + GLUCOSE INJECTION 500 ML
     Route: 041
     Dates: start: 20210828, end: 20210828
  7. PIRARUBICIN HYDROCHLORIDE [Suspect]
     Active Substance: PIRARUBICIN HYDROCHLORIDE
     Dosage: DOSE RE-INTRODUCED.
     Route: 041
  8. CISPLATIN [Suspect]
     Active Substance: CISPLATIN
     Indication: Neoplasm of thymus
     Dosage: FORM OF ADMIN.: LYOPHILIZED DRUG PRODUCT, CISPLATIN 80 MG + 0.9% SODIUM CHLORIDE 500 ML
     Route: 041
     Dates: start: 20210828, end: 20210828
  9. CISPLATIN [Suspect]
     Active Substance: CISPLATIN
     Dosage: DOSE RE-INTRODUCED.
     Route: 041

REACTIONS (1)
  - Granulocytopenia [Recovering/Resolving]

NARRATIVE: CASE EVENT DATE: 20210916
